FAERS Safety Report 4327829-2 (Version None)
Quarter: 2004Q1

REPORT INFORMATION
  Report Type: 
  Country: None (occurrence: None)
  Receive Date: 20040325
  Receipt Date: 20040312
  Transmission Date: 20041129
  Serious: Yes (Hospitalization)
  Sender: FDA-Public Use
  Company Number: JP-JNJFOC-20040301888

PATIENT
  Age: 68 Year
  Sex: Female
  Weight: 44.8 kg

DRUGS (11)
  1. LEVOFLOXACIN [Suspect]
     Indication: PNEUMONIA
     Dosage: 200 MG, 1 IN 1 DAY, ORAL
     Route: 048
     Dates: start: 20040228, end: 20040305
  2. TIENAM (TIENAM) [Concomitant]
  3. ONE-ALPHA (ALFACALCIDOL) [Concomitant]
  4. RUEFRIEN SL (LEVOGLUTAMIDE) [Concomitant]
  5. ENTERONON (LACTOBACILLUS ACIDOPHILUS) [Concomitant]
  6. HORDAZOL (CILOSTAZOL) [Concomitant]
  7. ALPRAZOLAM [Concomitant]
  8. MELLABON (KETOTIFEN) [Concomitant]
  9. RENAGEL [Concomitant]
  10. RAPYNOGEN (PROPANOLOL HYDROCHLORIDE) [Concomitant]
  11. CAPTOPRIL [Concomitant]

REACTIONS (5)
  - ANXIETY [None]
  - MEDICATION ERROR [None]
  - NAUSEA [None]
  - RED BLOOD CELL SEDIMENTATION RATE INCREASED [None]
  - TREMOR [None]
